FAERS Safety Report 12101650 (Version 2)
Quarter: 2016Q1

REPORT INFORMATION
  Report Type: Report from Study
  Country: FR (occurrence: FR)
  Receive Date: 20160222
  Receipt Date: 20160330
  Transmission Date: 20160526
  Serious: Yes (Hospitalization)
  Sender: FDA-Public Use
  Company Number: FR-EXELIXIS-XL18414005050

PATIENT
  Age: 67 Year
  Sex: Male
  Weight: 58 kg

DRUGS (7)
  1. XL184 [Suspect]
     Active Substance: CABOZANTINIB
     Indication: HEPATOCELLULAR CARCINOMA
     Dosage: 60 MG, QD
     Route: 048
     Dates: start: 20141029, end: 20141220
  2. INEXIUM [Concomitant]
     Active Substance: ESOMEPRAZOLE
     Dosage: 60 MG, UNK
  3. LOXEN [Concomitant]
     Active Substance: NICARDIPINE HYDROCHLORIDE
     Indication: HYPERTENSION
     Dosage: 50 MG, UNK
  4. TRIMEBUTINE [Concomitant]
     Active Substance: TRIMEBUTINE
     Dosage: 100 MG, UNK
  5. SKENAN [Concomitant]
     Active Substance: MORPHINE SULFATE
     Indication: PAIN IN EXTREMITY
     Dosage: 10
     Dates: start: 20141212
  6. KARDEGIC [Concomitant]
     Active Substance: ASPIRIN LYSINE
     Indication: PERIPHERAL ARTERIAL OCCLUSIVE DISEASE
     Dosage: 75 MG, UNK
     Dates: start: 20141128
  7. ACTISKENAN [Concomitant]
     Active Substance: MORPHINE SULFATE
     Indication: PAIN IN EXTREMITY
     Dosage: 5
     Dates: start: 20141212

REACTIONS (2)
  - Peripheral ischaemia [Recovered/Resolved]
  - Peripheral ischaemia [Not Recovered/Not Resolved]

NARRATIVE: CASE EVENT DATE: 20141219
